FAERS Safety Report 11860772 (Version 2)
Quarter: 2016Q4

REPORT INFORMATION
  Report Type: Spontaneous
  Country: FR (occurrence: FR)
  Receive Date: 20151222
  Receipt Date: 20161019
  Transmission Date: 20170206
  Serious: Yes (Hospitalization, Other)
  Sender: FDA-Public Use
  Company Number: PHHY2015FR165930

PATIENT
  Age: 81 Year
  Sex: Male

DRUGS (5)
  1. AFINITOR [Suspect]
     Active Substance: EVEROLIMUS
     Dosage: 5 MG, QD (DAILY)
     Route: 048
     Dates: start: 201505, end: 201508
  2. AVASTIN [Concomitant]
     Active Substance: BEVACIZUMAB
     Indication: PRODUCT USED FOR UNKNOWN INDICATION
     Route: 065
  3. AFINITOR [Suspect]
     Active Substance: EVEROLIMUS
     Indication: RENAL CANCER METASTATIC
     Dosage: 10 MG, QD (DAILY)
     Route: 048
     Dates: start: 20150115, end: 20150121
  4. SUTENT [Concomitant]
     Active Substance: SUNITINIB MALATE
     Indication: PRODUCT USED FOR UNKNOWN INDICATION
     Route: 065
  5. AFINITOR [Suspect]
     Active Substance: EVEROLIMUS
     Dosage: 5 MG, QD  (DAILY)
     Route: 048
     Dates: start: 20150213, end: 201504

REACTIONS (5)
  - Oedema peripheral [Unknown]
  - Cardiac failure [Recovering/Resolving]
  - Thrombocytopenia [Recovered/Resolved]
  - Cough [Unknown]
  - Dyspnoea [Unknown]

NARRATIVE: CASE EVENT DATE: 20150127
